FAERS Safety Report 24399228 (Version 3)
Quarter: 2025Q3

REPORT INFORMATION
  Report Type: Spontaneous
  Country: US (occurrence: US)
  Receive Date: 20241004
  Receipt Date: 20250803
  Transmission Date: 20251020
  Serious: Yes (Other)
  Sender: ALEXION PHARMACEUTICALS
  Company Number: US-AstraZeneca-CH-00715743A

PATIENT

DRUGS (3)
  1. VOYDEYA [Suspect]
     Active Substance: DANICOPAN
     Route: 065
  2. SOLIRIS [Suspect]
     Active Substance: ECULIZUMAB
     Route: 065
  3. ULTOMIRIS [Suspect]
     Active Substance: RAVULIZUMAB-CWVZ
     Route: 065

REACTIONS (4)
  - Haemoglobinuria [Unknown]
  - Breakthrough haemolysis [Unknown]
  - Intravascular haemolysis [Unknown]
  - Headache [Unknown]
